FAERS Safety Report 17629469 (Version 1)
Quarter: 2020Q2

REPORT INFORMATION
  Report Type: Other
  Country: GB (occurrence: GB)
  Receive Date: 20200406
  Receipt Date: 20200406
  Transmission Date: 20200713
  Serious: Yes (Other)
  Sender: FDA-Public Use
  Company Number: GB-EMCURE PHARMACEUTICALS LTD-2020-EPL-000392

PATIENT
  Age: 52 Year
  Sex: Female
  Weight: 68.48 kg

DRUGS (2)
  1. SERTRALINE HYDROCHLORIDE. [Suspect]
     Active Substance: SERTRALINE HYDROCHLORIDE
     Indication: DEPRESSION
     Route: 048
     Dates: start: 20200301, end: 20200313
  2. LANSOPRAZOLE. [Concomitant]
     Active Substance: LANSOPRAZOLE

REACTIONS (9)
  - Depressed mood [Unknown]
  - Insomnia [Recovered/Resolved]
  - Drug ineffective [Unknown]
  - Panic attack [Recovered/Resolved]
  - Anxiety [Unknown]
  - Dizziness [Unknown]
  - Product substitution issue [Unknown]
  - Feeling of despair [Recovered/Resolved]
  - Somnolence [Unknown]

NARRATIVE: CASE EVENT DATE: 20200301
